FAERS Safety Report 10005323 (Version 3)
Quarter: 2016Q2

REPORT INFORMATION
  Report Type: Report from Study
  Country: FR (occurrence: FR)
  Receive Date: 20140313
  Receipt Date: 20160621
  Transmission Date: 20160815
  Serious: Yes (Hospitalization)
  Sender: FDA-Public Use
  Company Number: FR-ROCHE-1164269

PATIENT
  Age: 54 Year
  Sex: Male

DRUGS (10)
  1. CIMZIA [Concomitant]
     Active Substance: CERTOLIZUMAB PEGOL
  2. CORTANCYL [Concomitant]
     Active Substance: PREDNISONE
     Route: 065
     Dates: start: 20080410
  3. ENBREL [Concomitant]
     Active Substance: ETANERCEPT
  4. TOCILIZUMAB [Suspect]
     Active Substance: TOCILIZUMAB
     Indication: RHEUMATOID ARTHRITIS
     Route: 065
     Dates: start: 20101019
  5. METHOTREXATE [Concomitant]
     Active Substance: METHOTREXATE
     Dosage: 15MH/W
     Route: 065
     Dates: start: 20080410
  6. RITUXIMAB [Suspect]
     Active Substance: RITUXIMAB
     Dosage: DAY 15: RECEIVED ON  09/FEB/2010
     Route: 042
     Dates: start: 20100125
  7. RITUXIMAB [Suspect]
     Active Substance: RITUXIMAB
     Indication: RHEUMATOID ARTHRITIS
     Dosage: DAY 15 DOSE RECEIVED ON 10/APR/2008
     Route: 042
     Dates: start: 20080328
  8. RITUXIMAB [Suspect]
     Active Substance: RITUXIMAB
     Dosage: DAY 15: ON 10/NOV/2008
     Route: 042
     Dates: start: 20081027
  9. METHOTREXATE [Concomitant]
     Active Substance: METHOTREXATE
     Route: 065
  10. ORENCIA [Concomitant]
     Active Substance: ABATACEPT

REACTIONS (8)
  - Lung disorder [Recovered/Resolved]
  - Cholelithiasis [Recovered/Resolved]
  - Cholecystitis [Recovered/Resolved]
  - Hypertension [Not Recovered/Not Resolved]
  - Bronchitis [Recovered/Resolved]
  - Asthenia [Recovered/Resolved]
  - Pterygium [Unknown]
  - Gastroenteritis [Recovered/Resolved]

NARRATIVE: CASE EVENT DATE: 20080329
